FAERS Safety Report 23184026 (Version 14)
Quarter: 2024Q2

REPORT INFORMATION
  Report Type: Report from Study
  Country: CA (occurrence: CA)
  Receive Date: 20231115
  Receipt Date: 20240619
  Transmission Date: 20240716
  Serious: Yes (Hospitalization)
  Sender: FDA-Public Use
  Company Number: CA-TAKEDA-CA202009797

PATIENT
  Age: 19 Year
  Sex: Male
  Weight: 63 kg

DRUGS (16)
  1. IDURSULFASE [Suspect]
     Active Substance: IDURSULFASE
     Indication: Mucopolysaccharidosis II
     Dosage: 36 MILLIGRAM, 1/WEEK
     Route: 065
     Dates: start: 20170412
  2. IDURSULFASE [Suspect]
     Active Substance: IDURSULFASE
     Dosage: 36 MILLIGRAM, 1/WEEK
     Route: 065
     Dates: start: 2020
  3. IDURSULFASE [Suspect]
     Active Substance: IDURSULFASE
     Dosage: 36 MILLIGRAM, 1/WEEK
     Route: 065
     Dates: start: 20200310
  4. IDURSULFASE [Suspect]
     Active Substance: IDURSULFASE
     Dosage: 36 MILLIGRAM, 1/WEEK
     Route: 065
     Dates: start: 20200315
  5. IDURSULFASE [Suspect]
     Active Substance: IDURSULFASE
     Dosage: 7 DOSAGE FORM, 1/WEEK
     Route: 050
  6. IDURSULFASE [Suspect]
     Active Substance: IDURSULFASE
     Dosage: 7 DOSAGE FORM, 1/WEEK
     Route: 050
  7. IDURSULFASE [Suspect]
     Active Substance: IDURSULFASE
     Dosage: 42 MILLIGRAM, 1/WEEK
     Route: 050
  8. IDURSULFASE [Suspect]
     Active Substance: IDURSULFASE
     Dosage: 42 MILLIGRAM, 1/WEEK
     Route: 042
  9. IDURSULFASE [Suspect]
     Active Substance: IDURSULFASE
     Dosage: 42 MILLIGRAM, 1/WEEK
     Route: 050
  10. IDURSULFASE [Suspect]
     Active Substance: IDURSULFASE
     Dosage: 42 MILLIGRAM, 1/WEEK
     Route: 050
  11. IDURSULFASE [Suspect]
     Active Substance: IDURSULFASE
     Dosage: 42 MILLIGRAM, 1/WEEK
     Route: 050
     Dates: start: 20170408
  12. IDURSULFASE [Suspect]
     Active Substance: IDURSULFASE
     Dosage: 42 MILLIGRAM, 1/WEEK
     Route: 050
  13. IDURSULFASE [Suspect]
     Active Substance: IDURSULFASE
     Dosage: 42 MILLIGRAM, 1/WEEK
     Route: 050
  14. IDURSULFASE [Suspect]
     Active Substance: IDURSULFASE
     Dosage: UNK UNK, 1/WEEK
     Route: 042
  15. TYLENOL [Concomitant]
     Active Substance: ACETAMINOPHEN
     Dosage: 972 MILLIGRAM, QID
     Route: 048
     Dates: start: 20231113
  16. NAPROXEN [Concomitant]
     Active Substance: NAPROXEN
     Dosage: 500 MILLIGRAM, BID
     Route: 048
     Dates: start: 20231113

REACTIONS (20)
  - Rhinorrhoea [Recovering/Resolving]
  - Blood culture positive [Unknown]
  - General physical health deterioration [Unknown]
  - Abdominal pain [Recovering/Resolving]
  - Weight increased [Unknown]
  - Thermal burn [Unknown]
  - Blood pressure fluctuation [Unknown]
  - Infusion site pain [Recovering/Resolving]
  - Infusion site extravasation [Recovering/Resolving]
  - Infusion site oedema [Recovering/Resolving]
  - Complication associated with device [Unknown]
  - Infusion site swelling [Recovering/Resolving]
  - Rash [Not Recovered/Not Resolved]
  - Weight decreased [Unknown]
  - Decreased appetite [Recovering/Resolving]
  - Ear infection [Recovered/Resolved]
  - Device occlusion [Unknown]
  - Needle issue [Unknown]
  - Inappropriate schedule of product administration [Recovering/Resolving]
  - Product administration error [Unknown]

NARRATIVE: CASE EVENT DATE: 20230801
